FAERS Safety Report 5735665-5 (Version None)
Quarter: 2008Q2

REPORT INFORMATION
  Report Type: 
  Country: None (occurrence: None)
  Receive Date: 20080512
  Receipt Date: 20080502
  Transmission Date: 20081010
  Serious: Yes (Other)
  Sender: FDA-Public Use
  Company Number: JP-PFIZER INC-2008038827

PATIENT
  Age: 80 Year
  Sex: Female

DRUGS (3)
  1. ZYVOX [Suspect]
     Dosage: DAILY DOSE:1200MG
     Route: 048
  2. HABEKACIN [Concomitant]
     Route: 042
  3. VANCOMYCIN [Concomitant]

REACTIONS (3)
  - BLOOD CHLORIDE DECREASED [None]
  - BLOOD POTASSIUM INCREASED [None]
  - BLOOD SODIUM INCREASED [None]
